FAERS Safety Report 8404809 (Version 3)
Quarter: 2013Q4

REPORT INFORMATION
  Report Type: Spontaneous
  Country: AU (occurrence: AU)
  Receive Date: 20120214
  Receipt Date: 20131119
  Transmission Date: 20140711
  Serious: Yes (Death, Life-Threatening, Other)
  Sender: FDA-Public Use
  Company Number: AU-ROCHE-1035321

PATIENT
  Age: 61 Year
  Sex: Female
  Weight: 102 kg

DRUGS (10)
  1. ACTEMRA [Suspect]
     Indication: RHEUMATOID ARTHRITIS
     Route: 042
     Dates: start: 201107, end: 201108
  2. METHOTREXATE [Suspect]
     Indication: RHEUMATOID ARTHRITIS
     Dosage: DOSE:12.5
     Route: 048
     Dates: start: 2002, end: 20120107
  3. ARAVA [Suspect]
     Indication: RHEUMATOID ARTHRITIS
     Dosage: ALTERNATE DAYS
     Route: 048
     Dates: start: 2003, end: 20120107
  4. PREDNISOLONE [Concomitant]
     Indication: RHEUMATOID ARTHRITIS
     Route: 048
     Dates: start: 2002, end: 20120107
  5. ISOPTIN [Concomitant]
     Route: 048
     Dates: start: 2011, end: 20120107
  6. ACIMAX [Concomitant]
     Route: 048
     Dates: start: 2006, end: 20120107
  7. MOBIC [Concomitant]
     Indication: RHEUMATOID ARTHRITIS
     Route: 048
     Dates: start: 2005, end: 20120107
  8. SLOW-K [Concomitant]
  9. FOSAMAX [Concomitant]
  10. PANADOL [Concomitant]

REACTIONS (4)
  - Meningioma [Fatal]
  - Neutropenia [Recovered/Resolved]
  - Purpura [Recovered/Resolved]
  - Anhedonia [Unknown]
